FAERS Safety Report 13074402 (Version 1)
Quarter: 2016Q4

REPORT INFORMATION
  Report Type: Spontaneous
  Country: US (occurrence: US)
  Receive Date: 20161230
  Receipt Date: 20161230
  Transmission Date: 20170207
  Serious: No
  Sender: FDA-Public Use
  Company Number: US-B.I. PHARMACEUTICALS,INC./RIDGEFIELD-2016-BI-087717

PATIENT
  Age: 87 Year
  Sex: Male

DRUGS (2)
  1. BROVANA [Concomitant]
     Active Substance: ARFORMOTEROL TARTRATE
     Indication: EMPHYSEMA
     Dosage: 1 VIAL EVERY 12 HOURS;  FORM STRENGTH: 15 MCG; FORMULATION: INHALATION SOLUTION
     Route: 055
     Dates: start: 201606
  2. ATROVENT [Suspect]
     Active Substance: IPRATROPIUM BROMIDE
     Indication: EMPHYSEMA
     Dosage: 2 INHALATIONS 4 TIMES DAILY AS NEEDED;  FORM STRENGTH: 17 MCG; FORMULATION: INHALATION AEROSOL? ADMI
     Route: 055
     Dates: start: 201610

REACTIONS (2)
  - Influenza like illness [Not Recovered/Not Resolved]
  - Rhinorrhoea [Not Recovered/Not Resolved]

NARRATIVE: CASE EVENT DATE: 20161223
